FAERS Safety Report 6011484-X (Version None)
Quarter: 2008Q4

REPORT INFORMATION
  Report Type: 
  Country: None (occurrence: None)
  Receive Date: 20081217
  Receipt Date: 20081217
  Transmission Date: 20090506
  Serious: Yes (Hospitalization)
  Sender: FDA-Public Use
  Company Number: None

PATIENT
  Age: 75 Year
  Sex: Male
  Weight: 115.2136 kg

DRUGS (2)
  1. AZITHROMYCIN [Suspect]
     Indication: CHRONIC OBSTRUCTIVE PULMONARY DISEASE
     Dosage: 250 MG DAILY PO
     Route: 048
     Dates: start: 20081209, end: 20081211
  2. AZITHROMYCIN [Suspect]
     Indication: DYSPNOEA
     Dosage: 250 MG DAILY PO
     Route: 048
     Dates: start: 20081209, end: 20081211

REACTIONS (5)
  - ERYTHEMA [None]
  - HYPERSENSITIVITY [None]
  - LIVER FUNCTION TEST ABNORMAL [None]
  - LIVER INJURY [None]
  - PRURITUS [None]
